FAERS Safety Report 22656004 (Version 1)
Quarter: 2023Q2

REPORT INFORMATION
  Report Type: Spontaneous
  Country: US (occurrence: None)
  Receive Date: 20230629
  Receipt Date: 20230629
  Transmission Date: 20230722
  Serious: No
  Sender: FDA-Public Use
  Company Number: None

PATIENT

DRUGS (2)
  1. LORATADINE [Suspect]
     Active Substance: LORATADINE
  2. ARMODAFINIL [Suspect]
     Active Substance: ARMODAFINIL

REACTIONS (1)
  - Product commingling [None]

NARRATIVE: CASE EVENT DATE: 20230522
